FAERS Safety Report 17680783 (Version 1)
Quarter: 2020Q2

REPORT INFORMATION
  Report Type: Spontaneous
  Country: CN (occurrence: CN)
  Receive Date: 20200417
  Receipt Date: 20200417
  Transmission Date: 20200714
  Serious: Yes (Hospitalization)
  Sender: FDA-Public Use
  Company Number: CN-009507513-2004CHN003664

PATIENT
  Age: 68 Year
  Sex: Male
  Weight: 65 kg

DRUGS (6)
  1. GEMCITABINE. [Suspect]
     Active Substance: GEMCITABINE
     Dosage: 1.6 GRAM, D8 (Q21D)
     Dates: start: 20200205
  2. KEYTRUDA [Suspect]
     Active Substance: PEMBROLIZUMAB
     Dosage: 200 MILLIGRAM, VD D1 (Q21D)
     Dates: start: 20200205
  3. CISPLATIN. [Suspect]
     Active Substance: CISPLATIN
     Dosage: 30 MILLIGRAM, VD, (D1-4 Q21D)
     Dates: start: 20200205
  4. KEYTRUDA [Suspect]
     Active Substance: PEMBROLIZUMAB
     Indication: BLADDER CANCER
     Dosage: 200 MILLIGRAM, VD D1 (Q21 DAYS)
     Dates: start: 20200110, end: 20200125
  5. GEMCITABINE. [Suspect]
     Active Substance: GEMCITABINE
     Indication: BLADDER CANCER
     Dosage: 1.6 GRAM, D1 (Q21D)
     Dates: start: 20200110
  6. CISPLATIN. [Suspect]
     Active Substance: CISPLATIN
     Indication: BLADDER CANCER
     Dosage: 30 MILLIGRAM, VD,(D1-4 Q21D)
     Dates: start: 20200110

REACTIONS (3)
  - Product use in unapproved indication [Unknown]
  - Inappropriate schedule of product administration [Unknown]
  - Hepatic function abnormal [Recovering/Resolving]

NARRATIVE: CASE EVENT DATE: 20200110
